FAERS Safety Report 7504832-2 (Version None)
Quarter: 2011Q2

REPORT INFORMATION
  Report Type: 
  Country: None (occurrence: None)
  Receive Date: 20110525
  Receipt Date: 20110513
  Transmission Date: 20111010
  Serious: Yes (Hospitalization)
  Sender: FDA-Public Use
  Company Number: DE-BAUSCH-2011BL002961

PATIENT
  Age: 72 Year
  Sex: Male

DRUGS (5)
  1. CORTISONE ACETATE [Concomitant]
     Indication: POLYNEUROPATHY
  2. STEROID ANTIBACTERIALS [Concomitant]
     Indication: INFLAMMATION
  3. TRUSOPT [Suspect]
     Indication: PRODUCT USED FOR UNKNOWN INDICATION
     Route: 047
  4. TIMOLOL MALEATE [Suspect]
     Indication: INTRAOCULAR PRESSURE INCREASED
     Route: 047
     Dates: start: 20080101, end: 20100602
  5. TIMOLOL MALEATE [Suspect]
     Route: 047
     Dates: start: 20100801

REACTIONS (2)
  - POLYNEUROPATHY [None]
  - BLOOD PRESSURE DECREASED [None]
